FAERS Safety Report 8561136-7 (Version None)
Quarter: 2012Q3

REPORT INFORMATION
  Report Type: 
  Country: None (occurrence: None)
  Receive Date: 20120802
  Receipt Date: 20120723
  Transmission Date: 20120928
  Serious: Yes (Other)
  Sender: FDA-Public Use
  Company Number: GB-ALLERGAN-1210144US

PATIENT
  Age: 69 Year
  Sex: Male

DRUGS (1)
  1. OZURDEX [Suspect]
     Indication: CYSTOID MACULAR OEDEMA
     Dosage: 0.7 MG, SINGLE
     Route: 031
     Dates: start: 20120531, end: 20120531

REACTIONS (2)
  - RETINAL DETACHMENT [None]
  - RETINAL TEAR [None]
